FAERS Safety Report 8223048-8 (Version None)
Quarter: 2012Q1

REPORT INFORMATION
  Report Type: 
  Country: None (occurrence: None)
  Receive Date: 20120321
  Receipt Date: 20120312
  Transmission Date: 20120608
  Serious: Yes (Other)
  Sender: FDA-Public Use
  Company Number: US-ASTRAZENECA-2011SE32240

PATIENT
  Age: 50 Year
  Sex: Female

DRUGS (39)
  1. NEXIUM [Suspect]
     Route: 048
     Dates: start: 20050118
  2. ASACOL [Concomitant]
     Dates: start: 20041228
  3. CYANOCOBALAM [Concomitant]
     Dosage: 1000 MGC
  4. CEPHALEXIN [Concomitant]
  5. CYMBALTA [Concomitant]
     Dates: start: 20050104
  6. NEXIUM [Suspect]
     Indication: DYSPEPSIA
     Route: 048
     Dates: start: 20010101
  7. NEXIUM [Suspect]
     Route: 048
     Dates: start: 20050118
  8. WELLBUTRIN [Concomitant]
     Indication: ANXIETY
  9. CALCIUM GLUCONATE [Concomitant]
     Indication: BONE DISORDER
  10. TROPAMAX [Concomitant]
  11. AMBIEN [Concomitant]
     Dates: start: 20050205
  12. DIOVAN [Concomitant]
     Indication: BLOOD PRESSURE
  13. PROMETRIUM [Concomitant]
     Indication: HORMONE REPLACEMENT THERAPY
  14. SAVELLA [Concomitant]
     Indication: FIBROMYALGIA
  15. LUNESTA [Concomitant]
     Indication: SLEEP DISORDER
  16. XANAX [Concomitant]
     Indication: ANXIETY
     Dates: start: 20041231
  17. VIVELLE-DOT [Concomitant]
     Indication: HORMONE REPLACEMENT THERAPY
  18. AMOXICILLIN [Concomitant]
  19. SERZONE [Concomitant]
     Indication: ANXIETY
     Dates: start: 20041231
  20. EFFEXON [Concomitant]
     Indication: DEPRESSION
  21. SAVELLA [Concomitant]
     Indication: DEPRESSION
  22. NUVIGIL [Concomitant]
     Indication: DEPRESSED LEVEL OF CONSCIOUSNESS
  23. CYMBALTA [Concomitant]
  24. NEXIUM [Suspect]
     Indication: GASTROOESOPHAGEAL REFLUX DISEASE
     Route: 048
     Dates: start: 20010101
  25. PRILOSEC OTC [Concomitant]
     Indication: GASTROOESOPHAGEAL REFLUX DISEASE
     Route: 048
  26. CRESTOR [Concomitant]
     Route: 048
  27. LYRICA [Concomitant]
     Indication: NEURALGIA
  28. CALCIUM CARBONATE [Concomitant]
  29. ASACOL [Concomitant]
     Indication: COLITIS ULCERATIVE
  30. WELLBUTRIN [Concomitant]
     Indication: DEPRESSION
  31. MULTI-VITAMIN [Concomitant]
  32. MELATONIN [Concomitant]
     Indication: SLEEP DISORDER
  33. CARVEDILOL [Concomitant]
  34. PREVACID [Concomitant]
  35. PEPCID [Concomitant]
  36. SERZONE [Concomitant]
     Indication: DEPRESSION
     Dates: start: 20041231
  37. XANAX [Concomitant]
     Indication: DEPRESSION
     Dates: start: 20041231
  38. LIMICTAL [Concomitant]
  39. HYOSCYAMINE [Concomitant]
     Dates: start: 20041228

REACTIONS (2)
  - ANXIETY [None]
  - FOOT FRACTURE [None]
